FAERS Safety Report 17871337 (Version 1)
Quarter: 2020Q2

REPORT INFORMATION
  Report Type: Spontaneous
  Country: US (occurrence: US)
  Receive Date: 20200605
  Receipt Date: 20200605
  Transmission Date: 20200714
  Serious: Yes (Death)
  Sender: FDA-Public Use
  Company Number: None

PATIENT
  Age: 92 Year
  Sex: Female

DRUGS (13)
  1. FERROUS SULFATE. [Concomitant]
     Active Substance: FERROUS SULFATE
  2. ASPIRIN. [Concomitant]
     Active Substance: ASPIRIN
  3. FECAL MICROBIOTA TRANSPLANT [Suspect]
     Active Substance: FECAL MICROBIOTA
     Indication: CLOSTRIDIUM DIFFICILE INFECTION
     Dates: start: 20200302, end: 20200302
  4. FAMOTIDINE. [Concomitant]
     Active Substance: FAMOTIDINE
  5. CETIRIZINE [Concomitant]
     Active Substance: CETIRIZINE HYDROCHLORIDE
  6. GABAPENTIN. [Concomitant]
     Active Substance: GABAPENTIN
  7. LEVOTHYROXINE. [Concomitant]
     Active Substance: LEVOTHYROXINE
  8. METOPROLOL. [Concomitant]
     Active Substance: METOPROLOL
  9. MULTIVITAMIN [Concomitant]
     Active Substance: VITAMINS
  10. NIFEDIPINE. [Concomitant]
     Active Substance: NIFEDIPINE
  11. SERTRAL INE [Concomitant]
  12. IOSARTAN [Concomitant]
  13. TOLTERODINE [Concomitant]
     Active Substance: TOLTERODINE

REACTIONS (5)
  - Hypoxia [None]
  - SARS-CoV-2 test positive [None]
  - Fatigue [None]
  - Diarrhoea [None]
  - Pneumonia [None]

NARRATIVE: CASE EVENT DATE: 20200428
